FAERS Safety Report 6406139-3 (Version None)
Quarter: 2009Q4

REPORT INFORMATION
  Report Type: 
  Country: None (occurrence: None)
  Receive Date: 20091016
  Receipt Date: 20091016
  Transmission Date: 20100525
  Serious: No
  Sender: FDA-Public Use
  Company Number: None

PATIENT
  Sex: Female
  Weight: 83.4619 kg

DRUGS (1)
  1. EFFEXOR XR [Suspect]
     Indication: DEPRESSION
     Dosage: 75 MG 1 PO
     Route: 048
     Dates: start: 20091004, end: 20091005

REACTIONS (4)
  - DIZZINESS [None]
  - DRUG EFFECT INCREASED [None]
  - NAUSEA [None]
  - PALPITATIONS [None]
